FAERS Safety Report 12317869 (Version 1)
Quarter: 2016Q2

REPORT INFORMATION
  Report Type: Spontaneous
  Country: JP (occurrence: JP)
  Receive Date: 20160429
  Receipt Date: 20160429
  Transmission Date: 20160815
  Serious: Yes (Hospitalization)
  Sender: FDA-Public Use
  Company Number: JP-PFIZER INC-2016230021

PATIENT
  Sex: Male

DRUGS (5)
  1. DIART [Suspect]
     Active Substance: AZOSEMIDE
     Indication: DIURETIC THERAPY
     Dosage: 30 MG, UNK
     Route: 048
  2. NICORANDIL [Concomitant]
     Active Substance: NICORANDIL
     Indication: CARDIAC DISORDER
     Route: 048
  3. ALDACTONE A [Suspect]
     Active Substance: SPIRONOLACTONE
     Indication: DIURETIC THERAPY
     Route: 048
  4. DIART [Suspect]
     Active Substance: AZOSEMIDE
     Dosage: 60 MG, UNK
     Route: 048
  5. HYDROCHLOROTHIAZIDE. [Suspect]
     Active Substance: HYDROCHLOROTHIAZIDE
     Indication: DIURETIC THERAPY
     Route: 048

REACTIONS (2)
  - Cardiac disorder [Unknown]
  - Nocturia [Unknown]
